FAERS Safety Report 4834217-9 (Version None)
Quarter: 2005Q4

REPORT INFORMATION
  Report Type: 
  Country: None (occurrence: None)
  Receive Date: 20051122
  Receipt Date: 20051109
  Transmission Date: 20060501
  Serious: Yes (Hospitalization)
  Sender: FDA-Public Use
  Company Number: 2005CG01848

PATIENT
  Age: 69 Year
  Sex: Female
  Weight: 82 kg

DRUGS (6)
  1. ATACAND [Suspect]
     Route: 048
  2. TERALITHE [Interacting]
     Route: 048
  3. SPIROCTAZINE [Interacting]
     Route: 048
  4. PROTHIADEN [Concomitant]
     Route: 048
  5. STILNOX [Concomitant]
     Route: 048
  6. PREVISCAN [Concomitant]

REACTIONS (4)
  - ANTIPSYCHOTIC DRUG LEVEL INCREASED [None]
  - CONFUSIONAL STATE [None]
  - DRUG INTERACTION [None]
  - SOMNOLENCE [None]
